FAERS Safety Report 5429607-X (Version None)
Quarter: 2007Q3

REPORT INFORMATION
  Report Type: 
  Country: None (occurrence: None)
  Receive Date: 20070829
  Receipt Date: 20070822
  Transmission Date: 20080115
  Serious: Yes (Hospitalization)
  Sender: FDA-Public Use
  Company Number: US-ELI_LILLY_AND_COMPANY-US200706001432

PATIENT
  Age: 69 Year
  Sex: Female
  Weight: 117.91 kg

DRUGS (8)
  1. BYETTA [Suspect]
     Indication: DIABETES MELLITUS
     Dosage: 5 UG, 2/D
     Route: 058
     Dates: start: 20070111
  2. ALLOPURINOL [Concomitant]
     Dosage: 100 MG, DAILY (1/D)
     Route: 048
  3. LOVASTATIN [Concomitant]
     Dosage: 20 MG, DAILY (1/D)
     Route: 048
  4. FUROSEMIDE [Concomitant]
     Dosage: 80 MG, DAILY (1/D)
     Route: 048
  5. AMARYL [Concomitant]
     Dosage: 4 MG, DAILY (1/D)
     Route: 048
  6. LEVOTHYROXINE SODIUM [Concomitant]
     Dosage: 0.08 MG, DAILY (1/D)
     Route: 048
  7. VITAMIN E /001105/ [Concomitant]
     Dosage: 400 UNK, DAILY (1/D)
     Route: 048
  8. CALCIUM W/VITAMIN D NOS [Concomitant]
     Dosage: 1200 MG, DAILY (1/D)
     Route: 048

REACTIONS (4)
  - CHOLELITHIASIS [None]
  - DECREASED APPETITE [None]
  - INJECTION SITE BRUISING [None]
  - WEIGHT DECREASED [None]
